FAERS Safety Report 5981640-5 (Version None)
Quarter: 2008Q4

REPORT INFORMATION
  Report Type: 
  Country: None (occurrence: None)
  Receive Date: 20081202
  Receipt Date: 20081117
  Transmission Date: 20090506
  Serious: Yes (Hospitalization)
  Sender: FDA-Public Use
  Company Number: 238511K07USA

PATIENT
  Age: 29 Year
  Sex: Female
  Weight: 61 kg

DRUGS (2)
  1. REBIF [Suspect]
     Indication: MULTIPLE SCLEROSIS
     Dosage: 44 MCG, 3 IN 1 WEEKS, SUBCUTANEOS
     Route: 058
     Dates: start: 20060104
  2. AVERT (ALL OTHER THERAPEUTIC PRODUCTS [Concomitant]

REACTIONS (3)
  - APPENDIX DISORDER [None]
  - CHOLECYSTITIS CHRONIC [None]
  - EJECTION FRACTION DECREASED [None]
